FAERS Safety Report 10079777 (Version 1)
Quarter: 2014Q2

REPORT INFORMATION
  Report Type: Spontaneous
  Country: FR (occurrence: FR)
  Receive Date: 20140415
  Receipt Date: 20140415
  Transmission Date: 20141212
  Serious: Yes (Other)
  Sender: FDA-Public Use
  Company Number: FR-ABBVIE-14P-056-1224048-00

PATIENT
  Age: 54 Year
  Sex: Male

DRUGS (2)
  1. NORVIR [Suspect]
     Indication: HIV INFECTION
     Dates: start: 1997
  2. TRUVADA [Suspect]
     Indication: HIV INFECTION
     Dates: start: 20070427, end: 20120306

REACTIONS (1)
  - Fanconi syndrome acquired [Recovering/Resolving]
